FAERS Safety Report 20658414 (Version 1)
Quarter: 2022Q1

REPORT INFORMATION
  Report Type: Spontaneous
  Country: DE (occurrence: DE)
  Receive Date: 20220331
  Receipt Date: 20220331
  Transmission Date: 20220423
  Serious: Yes (Death, Other)
  Sender: FDA-Public Use
  Company Number: DE-DCGMA-22197203

PATIENT
  Age: 93 Year
  Sex: Male

DRUGS (1)
  1. SOTROVIMAB [Suspect]
     Active Substance: SOTROVIMAB
     Indication: COVID-19
     Dosage: 500 MG
     Route: 065

REACTIONS (4)
  - Delirium [Fatal]
  - Respiration abnormal [Fatal]
  - Chills [Fatal]
  - Pyrexia [Fatal]

NARRATIVE: CASE EVENT DATE: 20220225
